FAERS Safety Report 5974136-8 (Version None)
Quarter: 2008Q4

REPORT INFORMATION
  Report Type: 
  Country: None (occurrence: None)
  Receive Date: 20081201
  Receipt Date: 20081125
  Transmission Date: 20090506
  Serious: Yes (Other)
  Sender: FDA-Public Use
  Company Number: AU-PFIZER INC-2008100204

PATIENT
  Sex: Male

DRUGS (6)
  1. LIPITOR [Suspect]
     Indication: BLOOD CHOLESTEROL INCREASED
     Route: 048
  2. SOMAC [Concomitant]
  3. PREDNISOLONE [Concomitant]
  4. METFORMIN HCL [Concomitant]
  5. TRITACE [Concomitant]
  6. PLAVIX [Concomitant]

REACTIONS (5)
  - HYPERSENSITIVITY [None]
  - INFECTION [None]
  - POLYMYALGIA RHEUMATICA [None]
  - RASH [None]
  - SKIN CANCER [None]
